FAERS Safety Report 21056308 (Version 4)
Quarter: 2022Q3

REPORT INFORMATION
  Report Type: Report from Study
  Country: CN (occurrence: CN)
  Receive Date: 20220708
  Receipt Date: 20220727
  Transmission Date: 20221027
  Serious: Yes (Hospitalization)
  Sender: FDA-Public Use
  Company Number: CN-SHANGHAI LIANBIO DEVELOPMENT CO., LTD.-LIA-2022-000010

PATIENT

DRUGS (4)
  1. INFIGRATINIB [Suspect]
     Active Substance: INFIGRATINIB
     Indication: Gastric cancer
     Dosage: 125 MILLIGRAM, QD
     Dates: start: 20220303, end: 20220323
  2. INFIGRATINIB [Suspect]
     Active Substance: INFIGRATINIB
     Dosage: 125 MILLIGRAM, QD
     Dates: start: 20220401, end: 20220415
  3. INFIGRATINIB [Suspect]
     Active Substance: INFIGRATINIB
     Dosage: 100 MILLIGRAM, QD
     Dates: start: 20220429, end: 20220514
  4. INFIGRATINIB [Suspect]
     Active Substance: INFIGRATINIB
     Dosage: 75 MILLIGRAM, QD
     Dates: start: 20220530, end: 20220619

REACTIONS (1)
  - Jaundice cholestatic [Recovering/Resolving]

NARRATIVE: CASE EVENT DATE: 20220628
